FAERS Safety Report 7356511-2 (Version None)
Quarter: 2011Q1

REPORT INFORMATION
  Report Type: 
  Country: None (occurrence: None)
  Receive Date: 20110316
  Receipt Date: 20110302
  Transmission Date: 20110831
  Serious: Yes (Hospitalization)
  Sender: FDA-Public Use
  Company Number: PHHY2011GB17603

PATIENT
  Age: 49 Year
  Sex: Female

DRUGS (2)
  1. METOPROLOL SUCCINATE [Suspect]
     Indication: ANGINA PECTORIS
     Dosage: 1/4 TABLET 3 TIMES DAILY
  2. METOPROLOL SUCCINATE [Suspect]
     Dosage: 12.5 MG, TID

REACTIONS (13)
  - LOSS OF CONSCIOUSNESS [None]
  - ABASIA [None]
  - VISUAL IMPAIRMENT [None]
  - LOWER RESPIRATORY TRACT INFECTION [None]
  - CHEST PAIN [None]
  - BLOOD PRESSURE DECREASED [None]
  - MALAISE [None]
  - DYSPNOEA [None]
  - HEADACHE [None]
  - PARAESTHESIA [None]
  - HEART RATE DECREASED [None]
  - DYSKINESIA [None]
  - FALL [None]
